FAERS Safety Report 10029520 (Version 1)
Quarter: 2014Q1

REPORT INFORMATION
  Report Type: Spontaneous
  Country: US (occurrence: None)
  Receive Date: 20140320
  Receipt Date: 20140320
  Transmission Date: 20141002
  Serious: Yes (Life-Threatening, Hospitalization, Other)
  Sender: FDA-Public Use
  Company Number: None

PATIENT
  Age: 68 Year
  Sex: Male
  Weight: 81.65 kg

DRUGS (7)
  1. TERBINAFINE HCL [Suspect]
     Indication: ORAL HERPES
     Dosage: 21 PILLS 1 TABLE T PER DAY
     Route: 048
     Dates: start: 20140106, end: 20140120
  2. AMIODARONE [Concomitant]
  3. INSULIN [Concomitant]
  4. LEVOTHYROXINE [Concomitant]
  5. LISINOPRIL [Concomitant]
  6. RIVAROXBAN [Concomitant]
  7. OMEPRAZOLE [Concomitant]

REACTIONS (1)
  - Pancreatitis [None]
